FAERS Safety Report 24211547 (Version 5)
Quarter: 2025Q2

REPORT INFORMATION
  Report Type: Report from Study
  Country: US (occurrence: US)
  Receive Date: 20240814
  Receipt Date: 20250617
  Transmission Date: 20250716
  Serious: Yes (Other)
  Sender: NOVARTIS
  Company Number: US-002147023-NVSC2024US162807

PATIENT
  Sex: Female

DRUGS (1)
  1. KESIMPTA [Suspect]
     Active Substance: OFATUMUMAB
     Indication: Product used for unknown indication
     Dosage: 20 MG, QMO
     Route: 058

REACTIONS (8)
  - Multiple sclerosis relapse [Unknown]
  - Vision blurred [Recovered/Resolved]
  - Balance disorder [Recovered/Resolved]
  - Coordination abnormal [Recovered/Resolved]
  - Fatigue [Unknown]
  - Device malfunction [Unknown]
  - Accidental exposure to product [Unknown]
  - Incorrect dose administered by device [Unknown]
